FAERS Safety Report 6643314-7 (Version None)
Quarter: 2010Q1

REPORT INFORMATION
  Report Type: 
  Country: None (occurrence: None)
  Receive Date: 20100319
  Receipt Date: 20100308
  Transmission Date: 20100710
  Serious: Yes (Other)
  Sender: FDA-Public Use
  Company Number: FR-ROCHE-689917

PATIENT
  Age: 31 Year
  Sex: Male

DRUGS (7)
  1. MYCOPHENOLATE MOFETIL [Suspect]
     Route: 065
  2. PEG-INTERFERON A-2A (RO 25-8310) [Suspect]
     Indication: HEPATITIS E
     Route: 065
  3. TACROLIMUS [Suspect]
     Route: 065
  4. TACROLIMUS [Suspect]
     Dosage: DOSE REDUCED TO TROUGH LEVELS OF 2-4 NG/ML
     Route: 065
  5. TACROLIMUS [Suspect]
     Dosage: DOSE INCREASED
     Route: 065
  6. ANTI-THYMOCYTE GLOBULIN NOS [Suspect]
     Route: 065
  7. LAMIVUDINE [Concomitant]

REACTIONS (3)
  - HEPATITIS ACUTE [None]
  - HEPATITIS E [None]
  - TRANSPLANT REJECTION [None]
